FAERS Safety Report 10314383 (Version 1)
Quarter: 2014Q3

REPORT INFORMATION
  Report Type: Spontaneous
  Country: IT (occurrence: IT)
  Receive Date: 20140718
  Receipt Date: 20140718
  Transmission Date: 20150326
  Serious: Yes (Hospitalization, Other)
  Sender: FDA-Public Use
  Company Number: IT-ASTRAZENECA-2014SE50007

PATIENT
  Age: 55 Year
  Sex: Male

DRUGS (2)
  1. ASA [Suspect]
     Active Substance: ASPIRIN
  2. BRILIQUE [Suspect]
     Active Substance: TICAGRELOR
     Route: 048

REACTIONS (3)
  - Angiodysplasia [Unknown]
  - Melaena [Unknown]
  - Syncope [Unknown]

NARRATIVE: CASE EVENT DATE: 20140707
